FAERS Safety Report 13010194 (Version 1)
Quarter: 2016Q4

REPORT INFORMATION
  Report Type: Spontaneous
  Country: US (occurrence: US)
  Receive Date: 20161208
  Receipt Date: 20161208
  Transmission Date: 20170207
  Serious: Yes (Death)
  Sender: FDA-Public Use
  Company Number: US-JNJFOC-20161206428

PATIENT
  Sex: Male

DRUGS (9)
  1. VALTREX [Concomitant]
     Active Substance: VALACYCLOVIR HYDROCHLORIDE
  2. AMLODIPINE [Concomitant]
     Active Substance: AMLODIPINE BESYLATE
  3. IMBRUVICA [Suspect]
     Active Substance: IBRUTINIB
     Indication: PRODUCT USED FOR UNKNOWN INDICATION
     Route: 048
     Dates: start: 20160921
  4. CLOMIPRAMINE HCL [Concomitant]
     Active Substance: CLOMIPRAMINE
  5. LAMICTAL [Concomitant]
     Active Substance: LAMOTRIGINE
  6. LEUCOVORIN CALCIUM. [Concomitant]
     Active Substance: LEUCOVORIN CALCIUM
  7. CLOFAZIMINE [Concomitant]
     Active Substance: CLOFAZIMINE
  8. GABAPENTIN. [Concomitant]
     Active Substance: GABAPENTIN
  9. HUMULIN R [Concomitant]
     Active Substance: INSULIN HUMAN

REACTIONS (1)
  - Death [Fatal]
